FAERS Safety Report 5714763-6 (Version None)
Quarter: 2008Q2

REPORT INFORMATION
  Report Type: 
  Country: None (occurrence: None)
  Receive Date: 20080423
  Receipt Date: 20060927
  Transmission Date: 20081010
  Serious: Yes (Death, Hospitalization)
  Sender: FDA-Public Use
  Company Number: DE-ROCHE-463477

PATIENT
  Sex: Female
  Weight: 70 kg

DRUGS (12)
  1. CAPECITABINE [Suspect]
     Indication: BREAST CANCER
     Dosage: FREQUENCY: GIVEN EVERY 21 DAYS LAST DOSE PRIOR TO SAE WAS 20 SEP 2006
     Route: 048
     Dates: start: 20060906
  2. DOCETAXEL [Suspect]
     Indication: BREAST CANCER
     Dosage: LAST DOSE PRIOR TO SAE WAS 06 SEP 2006
     Route: 042
     Dates: start: 20060906
  3. NEXIUM [Concomitant]
     Dates: start: 20060915, end: 20060925
  4. METOCLOPRAMIDE [Concomitant]
     Dosage: TOTAL DAILY DOSAGE REPORTED AS ^3X30TH^
     Dates: start: 20060915, end: 20060925
  5. KALINOR [Concomitant]
     Dosage: TOTAL DAILY DOSAGE REPORTED AS ^1BT^
     Dates: start: 20060518, end: 20060922
  6. KALINOR [Concomitant]
     Dosage: TOTAL DAILY DOSAGE REPORTED AS ^1BT^
     Dates: start: 20060518, end: 20060922
  7. IDEOS [Concomitant]
     Dosage: TOTAL DAILY DOSAGE REPORTED AS ^1BT^
     Dates: start: 20060918, end: 20060922
  8. IDEOS [Concomitant]
     Dosage: TOTAL DAILY DOSAGE REPORTED AS ^1BT^
     Dates: start: 20060918, end: 20060922
  9. ZIENAM [Concomitant]
     Dosage: TREATMENT FROM: 13-19 SEPT 2006 24-25 SEPT 2006
     Route: 042
     Dates: start: 20060913, end: 20060925
  10. ZIENAM [Concomitant]
     Dosage: TREATMENT FROM: 13-19 SEPT 2006 24-25 SEPT 2006
     Route: 042
     Dates: start: 20060913, end: 20060925
  11. DIFLUCAN [Concomitant]
     Dosage: THERAPIES: - 400MCG ON 22 SEPT 2006 - 200 MCG ON 23 AND 24 SEPT 2006
     Route: 042
     Dates: start: 20060922, end: 20060924
  12. CLONT [Concomitant]
     Route: 042
     Dates: start: 20060924, end: 20060925

REACTIONS (2)
  - DEATH [None]
  - FEBRILE NEUTROPENIA [None]
